FAERS Safety Report 8772622 (Version 2)
Quarter: 2012Q4

REPORT INFORMATION
  Report Type: 
  Country: US (occurrence: US)
  Receive Date: 20120830
  Receipt Date: 20121009
  Transmission Date: 20130627
  Serious: No
  Sender: FDA-Public Use
  Company Number: US-ELI_LILLY_AND_COMPANY-US201208001030

PATIENT
  Sex: Female

DRUGS (11)
  1. FORTEO [Suspect]
     Indication: OSTEOPOROSIS
     Dosage: 20 ug, qd
     Route: 065
     Dates: start: 2012
  2. FORTEO [Suspect]
     Dosage: 20 ug, qd
  3. ASPIRIN [Concomitant]
  4. BONIVA [Concomitant]
     Dosage: UNK
  5. LEVOTHYROXINE [Concomitant]
     Indication: THYROID DISORDER
     Dosage: 125 ug, UNK
  6. PRIMIDONE [Concomitant]
     Dosage: 250 mg, UNK
  7. DILANTIN [Concomitant]
     Dosage: 130 mg, UNK
  8. TAMOXIFEN [Concomitant]
     Dosage: 20 mg, UNK
  9. MULTIPLE VITAMINS [Concomitant]
  10. VITAMIN D3 [Concomitant]
  11. CALCIUM CARBONATE [Concomitant]

REACTIONS (2)
  - Injection site reaction [Unknown]
  - Injection site bruising [Unknown]
